FAERS Safety Report 21049376 (Version 2)
Quarter: 2022Q3

REPORT INFORMATION
  Report Type: Spontaneous
  Country: FR (occurrence: FR)
  Receive Date: 20220706
  Receipt Date: 20220726
  Transmission Date: 20221027
  Serious: Yes (Hospitalization, Other)
  Sender: FDA-Public Use
  Company Number: FR-ABBVIE-22K-056-4457388-00

PATIENT
  Age: 87 Year
  Sex: Female
  Weight: 53 kg

DRUGS (1)
  1. DEPAKOTE [Suspect]
     Active Substance: DIVALPROEX SODIUM
     Indication: Epilepsy
     Route: 048
     Dates: start: 20220601

REACTIONS (1)
  - Hyperammonaemic encephalopathy [Recovering/Resolving]

NARRATIVE: CASE EVENT DATE: 20220617
